FAERS Safety Report 7767786-X (Version None)
Quarter: 2011Q3

REPORT INFORMATION
  Report Type: 
  Country: None (occurrence: None)
  Receive Date: 20110922
  Receipt Date: 20101214
  Transmission Date: 20111222
  Serious: No
  Sender: FDA-Public Use
  Company Number: US-ASTRAZENECA-2010SE59243

PATIENT
  Age: 85 Year
  Sex: Male

DRUGS (11)
  1. METOPROLOL TARTRATE [Concomitant]
     Dosage: TWO TIMES A DAY
  2. DIGOXIN [Concomitant]
  3. SEROQUEL [Suspect]
     Indication: DEMENTIA ALZHEIMER'S TYPE
     Route: 048
     Dates: start: 20060101
  4. METFORMIN HCL [Concomitant]
  5. WARFARIN SODIUM [Concomitant]
  6. ASPIRIN [Concomitant]
  7. SEROQUEL [Suspect]
     Indication: DEMENTIA
     Route: 048
     Dates: start: 20060101
  8. GALANTAMINE HYDROBROMIDE [Concomitant]
     Indication: DEMENTIA ALZHEIMER'S TYPE
  9. RAMIPRIL [Concomitant]
     Dosage: GENERIC FORM AS WELL
  10. GENUVA [Concomitant]
     Indication: DIABETES MELLITUS
  11. SIMVASTATIN [Concomitant]

REACTIONS (4)
  - ARRHYTHMIA [None]
  - RHINORRHOEA [None]
  - HALLUCINATION, VISUAL [None]
  - HYPERGLYCAEMIA [None]
